FAERS Safety Report 7570069-4 (Version None)
Quarter: 2011Q2

REPORT INFORMATION
  Report Type: 
  Country: None (occurrence: None)
  Receive Date: 20110620
  Receipt Date: 20110305
  Transmission Date: 20111010
  Serious: Yes (Other)
  Sender: FDA-Public Use
  Company Number: US-20110002

PATIENT

DRUGS (2)
  1. LIPIODOL (ETHIODIZED OIL) (ETHIODIZED OIL) [Suspect]
     Indication: THERAPEUTIC EMBOLISATION
     Dosage: 1 IN 1 TOTAL
     Dates: start: 20110303, end: 20110303
  2. ADRIAMYCIN RDF [Suspect]
     Indication: THERAPEUTIC EMBOLISATION
     Dosage: 1 IN 1 TOTAL
     Dates: start: 20110303, end: 20110303

REACTIONS (3)
  - OVERDOSE [None]
  - ACUTE RESPIRATORY DISTRESS SYNDROME [None]
  - OFF LABEL USE [None]
